FAERS Safety Report 13498957 (Version 1)
Quarter: 2017Q2

REPORT INFORMATION
  Report Type: Spontaneous
  Country: US (occurrence: US)
  Receive Date: 20170429
  Receipt Date: 20170429
  Transmission Date: 20170830
  Serious: Yes (Life-Threatening, Hospitalization, Disabling, Other)
  Sender: FDA-Public Use
  Company Number: None

PATIENT
  Age: 29 Year
  Sex: Female
  Weight: 56.25 kg

DRUGS (1)
  1. SEPTRA [Suspect]
     Active Substance: SULFAMETHOXAZOLE\TRIMETHOPRIM
     Indication: BACTERIAL INFECTION
     Dosage: ?          QUANTITY:1 TABLET(S);?
     Route: 048
     Dates: start: 20161109, end: 20161109

REACTIONS (7)
  - Dyspnoea [None]
  - Hypersensitivity [None]
  - Photosensitivity reaction [None]
  - Chemical burn of skin [None]
  - Fear [None]
  - Panic attack [None]
  - Apparent death [None]

NARRATIVE: CASE EVENT DATE: 20161109
